FAERS Safety Report 19577122 (Version 1)
Quarter: 2021Q3

REPORT INFORMATION
  Report Type: Spontaneous
  Country: US (occurrence: US)
  Receive Date: 20210719
  Receipt Date: 20210719
  Transmission Date: 20211014
  Serious: No
  Sender: FDA-Public Use
  Company Number: US-ASTRAZENECA-2021A569513

PATIENT
  Age: 675 Month
  Sex: Female
  Weight: 139.7 kg

DRUGS (1)
  1. BYDUREON BCISE [Suspect]
     Active Substance: EXENATIDE
     Indication: TYPE 2 DIABETES MELLITUS
     Route: 058

REACTIONS (13)
  - Musculoskeletal stiffness [Unknown]
  - Blood glucose abnormal [Unknown]
  - Weight decreased [Unknown]
  - Myalgia [Unknown]
  - Hypoaesthesia [Unknown]
  - Muscle disorder [Unknown]
  - Glycosylated haemoglobin abnormal [Unknown]
  - Drug ineffective [Unknown]
  - Pain [Unknown]
  - Limb discomfort [Unknown]
  - Memory impairment [Unknown]
  - Laboratory test abnormal [Unknown]
  - Blood glucose increased [Unknown]

NARRATIVE: CASE EVENT DATE: 202010
